FAERS Safety Report 9818259 (Version 1)
Quarter: 2014Q1

REPORT INFORMATION
  Report Type: Spontaneous
  Country: US (occurrence: US)
  Receive Date: 20140115
  Receipt Date: 20140115
  Transmission Date: 20141002
  Serious: Yes (Other)
  Sender: FDA-Public Use
  Company Number: US-BAYER-2014-003764

PATIENT
  Age: 83 Year
  Sex: Female

DRUGS (1)
  1. ALEVE CAPLET [Suspect]

REACTIONS (2)
  - Ulcer [None]
  - Drug hypersensitivity [None]
